FAERS Safety Report 4763298-6 (Version None)
Quarter: 2005Q3

REPORT INFORMATION
  Report Type: 
  Country: None (occurrence: None)
  Receive Date: 20050908
  Receipt Date: 20050831
  Transmission Date: 20060218
  Serious: Yes (Other)
  Sender: FDA-Public Use
  Company Number: CH-JNJFOC-20050901053

PATIENT
  Sex: Female

DRUGS (7)
  1. CAELYX [Suspect]
     Dosage: X 3 CYCLES
     Route: 042
  2. XELODA [Concomitant]
     Route: 048
  3. NAVOBAN [Concomitant]
     Indication: PREMEDICATION
  4. SOLU-MEDROL [Concomitant]
     Indication: PREMEDICATION
  5. DUPHALAC [Concomitant]
     Indication: CONSTIPATION
     Route: 048
  6. DURAGESIC-100 [Concomitant]
     Indication: PAIN
     Dosage: 5MG/20 CM2
     Route: 062
  7. LORAZEPAM [Concomitant]
     Indication: PAIN
     Route: 048

REACTIONS (2)
  - DERMATITIS EXFOLIATIVE [None]
  - EPIDERMOLYSIS [None]
